FAERS Safety Report 5014569-X (Version None)
Quarter: 2006Q2

REPORT INFORMATION
  Report Type: 
  Country: None (occurrence: None)
  Receive Date: 20060525
  Receipt Date: 20060512
  Transmission Date: 20061013
  Serious: Yes (Other)
  Sender: FDA-Public Use
  Company Number: 2006024452

PATIENT
  Sex: Male

DRUGS (7)
  1. VIAGRA [Suspect]
     Indication: ILL-DEFINED DISORDER
     Dosage: 50 MG
  2. ALTACE [Concomitant]
  3. LEXAPRO [Concomitant]
  4. TOPROL-XL [Concomitant]
  5. NIASPAN [Concomitant]
  6. PRAVACHOL [Concomitant]
  7. DYAZIDE [Concomitant]

REACTIONS (7)
  - CORONARY ARTERY DISEASE [None]
  - CORONARY ARTERY SURGERY [None]
  - DEPRESSION [None]
  - DIABETES MELLITUS NON-INSULIN-DEPENDENT [None]
  - DRUG INEFFECTIVE [None]
  - HYPERTENSION [None]
  - MYOCARDIAL INFARCTION [None]
